FAERS Safety Report 10089254 (Version 1)
Quarter: 2014Q2

REPORT INFORMATION
  Report Type: Spontaneous
  Country: JP (occurrence: JP)
  Receive Date: 20140421
  Receipt Date: 20140421
  Transmission Date: 20141212
  Serious: Yes (Death, Other)
  Sender: FDA-Public Use
  Company Number: JP-ELI_LILLY_AND_COMPANY-JP201404006228

PATIENT
  Age: 40 Year
  Sex: Male
  Weight: 64.8 kg

DRUGS (20)
  1. HUMULIN REGULAR [Suspect]
     Indication: HYPERGLYCAEMIA
     Dosage: 50 IU, UNK
     Route: 042
     Dates: start: 20131102, end: 20131109
  2. VANCOMYCIN [Suspect]
     Indication: NEUTROPENIC SEPSIS
     Dosage: 2 G, UNK
     Route: 042
     Dates: start: 20131027, end: 20131027
  3. VANCOMYCIN [Suspect]
     Dosage: 2.5 G, UNK
     Route: 042
     Dates: start: 20131028, end: 20131029
  4. VANCOMYCIN [Suspect]
     Dosage: 2 G, UNK
     Route: 042
     Dates: start: 20131030, end: 20131030
  5. VANCOMYCIN [Suspect]
     Dosage: 1.5 G, UNK
     Route: 042
     Dates: start: 20131031, end: 20131107
  6. INOTUZUMAB OZOGAMICIN [Suspect]
     Indication: ACUTE LYMPHOCYTIC LEUKAEMIA
     Dosage: 1.42 MG, UNK
     Route: 042
     Dates: start: 20131022, end: 20131028
  7. TAKEPRON [Suspect]
     Indication: PROPHYLAXIS AGAINST GASTROINTESTINAL ULCER
     Dosage: 30 MG, UNK
     Route: 042
     Dates: start: 20131027, end: 20131108
  8. MEROPEN [Suspect]
     Indication: NEUTROPENIC SEPSIS
     Dosage: 1 G, UNK
     Route: 042
     Dates: start: 20131027, end: 20131108
  9. NICARDIPINE [Suspect]
     Indication: HYPERTENSION
     Dosage: 30 MG, UNK
     Route: 042
     Dates: start: 20131103, end: 20131109
  10. HYDROCORTONE [Suspect]
     Indication: PYREXIA
     Dosage: 200 MG, UNK
     Route: 042
     Dates: start: 20131027, end: 20131029
  11. HYDROCORTONE [Suspect]
     Dosage: 150 MG, UNK
     Route: 042
     Dates: start: 20131030, end: 20131101
  12. HYDROCORTONE [Suspect]
     Dosage: 100 MG, UNK
     Route: 042
     Dates: start: 20131102, end: 20131104
  13. HYDROCORTONE [Suspect]
     Dosage: 50 MG, UNK
     Route: 042
     Dates: start: 20131105, end: 20131109
  14. GLYCEOL [Suspect]
     Indication: BRAIN OEDEMA
  15. GRAN [Suspect]
     Indication: NEUTROPENIA
     Dosage: 75 UG, UNK
     Route: 058
     Dates: start: 20131025, end: 20131108
  16. CHLORTRIMETON [Suspect]
     Indication: PRODUCT USED FOR UNKNOWN INDICATION
     Dosage: 10 MG, UNK
     Route: 065
     Dates: start: 20131022, end: 20131107
  17. LACTEC [Concomitant]
     Indication: PRODUCT USED FOR UNKNOWN INDICATION
     Dosage: UNK
     Route: 065
     Dates: start: 20131027, end: 20131109
  18. BFLUID [Concomitant]
     Indication: PRODUCT USED FOR UNKNOWN INDICATION
     Dosage: UNK
     Route: 065
     Dates: start: 20131102, end: 20131106
  19. PHYSIO 70 [Concomitant]
     Indication: PRODUCT USED FOR UNKNOWN INDICATION
     Dosage: UNK
     Route: 065
     Dates: start: 20131102, end: 20131106
  20. FENTANYL CITRATE [Concomitant]
     Indication: PRODUCT USED FOR UNKNOWN INDICATION
     Dosage: UNK
     Route: 065
     Dates: start: 20131027

REACTIONS (2)
  - Neutropenic sepsis [Fatal]
  - Venoocclusive liver disease [Not Recovered/Not Resolved]
